FAERS Safety Report 6661824-3 (Version None)
Quarter: 2010Q1

REPORT INFORMATION
  Report Type: 
  Country: None (occurrence: None)
  Receive Date: 20100331
  Receipt Date: 20090720
  Transmission Date: 20100710
  Serious: No
  Sender: FDA-Public Use
  Company Number: US-BRISTOL-MYERS SQUIBB COMPANY-14708630

PATIENT
  Age: 50 Year
  Sex: Male

DRUGS (6)
  1. ERBITUX [Suspect]
     Indication: COLORECTAL CANCER METASTATIC
     Dosage: 2ND INF: 16JUL09.
  2. BENADRYL [Concomitant]
     Indication: PREMEDICATION
  3. VITAMIN B-12 [Concomitant]
  4. NEXIUM [Concomitant]
  5. VITAMIN B6 [Concomitant]
  6. ALPHA-LIPOIC ACID [Concomitant]

REACTIONS (3)
  - CHILLS [None]
  - RASH [None]
  - TREMOR [None]
